FAERS Safety Report 14506261 (Version 1)
Quarter: 2018Q1

REPORT INFORMATION
  Report Type: Spontaneous
  Country: US (occurrence: US)
  Receive Date: 20180208
  Receipt Date: 20180208
  Transmission Date: 20180509
  Serious: Yes (Other)
  Sender: FDA-Public Use
  Company Number: US-TEVA-2018-US-855770

PATIENT
  Age: 7 Decade
  Sex: Female

DRUGS (4)
  1. GEMCITABINE [Concomitant]
     Active Substance: GEMCITABINE\GEMCITABINE HYDROCHLORIDE
     Indication: BREAST CANCER RECURRENT
     Dosage: 1000 MG/M2 ON DAYS 1, 8, AND 15, EVERY 28 DAY CYCLE
     Route: 065
     Dates: start: 201005
  2. ERIBULIN [Concomitant]
     Active Substance: ERIBULIN
     Indication: BREAST CANCER RECURRENT
     Dosage: 1.4 MG/M2 ON DAYS 1 AND 8 EVERY 21 DAY CYCLE
     Route: 065
  3. CAPECITABINE. [Suspect]
     Active Substance: CAPECITABINE
     Indication: BREAST CANCER RECURRENT
     Dosage: 3000 MILLIGRAM DAILY;
     Route: 048
     Dates: start: 200905
  4. PACLITAXEL. [Suspect]
     Active Substance: PACLITAXEL
     Indication: BREAST CANCER RECURRENT
     Dosage: FOR 6 CYCLES
     Route: 065

REACTIONS (2)
  - Palmar-plantar erythrodysaesthesia syndrome [Unknown]
  - Drug eruption [Unknown]
